FAERS Safety Report 10225234 (Version 1)
Quarter: 2014Q1

REPORT INFORMATION
  Report Type: Spontaneous
  Country: US (occurrence: None)
  Receive Date: 20140306
  Receipt Date: 20140306
  Transmission Date: 20141002
  Serious: Yes (Hospitalization, Other)
  Sender: FDA-Public Use
  Company Number: 163-21880-13050580

PATIENT
  Age: 86 Year
  Sex: Male

DRUGS (3)
  1. REVLIMID (LENALIDOMIDE) (5 MILLIGRAM, CAPSULES) [Suspect]
     Indication: MYELODYSPLASTIC SYNDROME
     Route: 048
     Dates: start: 20130314
  2. LEVOXYL [Concomitant]
  3. GLIMEPIRIDE (GLIMEPIRIDE) [Concomitant]

REACTIONS (2)
  - Cardiac failure [None]
  - Atrial fibrillation [None]
